FAERS Safety Report 18348935 (Version 2)
Quarter: 2020Q4

REPORT INFORMATION
  Report Type: Report from Study
  Country: None (occurrence: US)
  Receive Date: 20201006
  Receipt Date: 20201104
  Transmission Date: 20210114
  Serious: Yes (Other)
  Sender: FDA-Public Use
  Company Number: US-ABBVIE-20K-163-3591905-00

PATIENT
  Sex: Female

DRUGS (3)
  1. HUMIRA [Suspect]
     Active Substance: ADALIMUMAB
     Indication: RHEUMATOID ARTHRITIS
     Dosage: CITRATE FREE
     Route: 058
  2. CYMBALTA [Concomitant]
     Active Substance: DULOXETINE HYDROCHLORIDE
     Indication: PRODUCT USED FOR UNKNOWN INDICATION
     Dates: start: 202009
  3. GABAPENTIN. [Concomitant]
     Active Substance: GABAPENTIN
     Indication: PAIN

REACTIONS (8)
  - Suicidal ideation [Unknown]
  - Mobility decreased [Unknown]
  - Hyperhidrosis [Recovered/Resolved]
  - Hypersomnia [Recovered/Resolved]
  - Diabetic neuropathy [Not Recovered/Not Resolved]
  - Asthenia [Unknown]
  - Neuralgia [Not Recovered/Not Resolved]
  - Depression [Recovered/Resolved]
